FAERS Safety Report 20070798 (Version 1)
Quarter: 2021Q4

REPORT INFORMATION
  Report Type: Spontaneous
  Country: US (occurrence: None)
  Receive Date: 20211115
  Receipt Date: 20211115
  Transmission Date: 20220303
  Serious: No
  Sender: FDA-Public Use
  Company Number: None

PATIENT
  Age: 60 Year
  Sex: Male
  Weight: 82.62 kg

DRUGS (1)
  1. CAPECITABINE [Suspect]
     Active Substance: CAPECITABINE
     Indication: Colon cancer
     Dosage: FREQUENCY : TWICE A DAY;?
     Route: 048

REACTIONS (8)
  - Hypersomnia [None]
  - Nausea [None]
  - Dyspepsia [None]
  - Stomatitis [None]
  - Drug ineffective [None]
  - Sinus operation [None]
  - Pain [None]
  - Chills [None]

NARRATIVE: CASE EVENT DATE: 20211115
